FAERS Safety Report 8517181-0 (Version None)
Quarter: 2012Q2

REPORT INFORMATION
  Report Type: 
  Country: None (occurrence: None)
  Receive Date: 20120406
  Receipt Date: 20110128
  Transmission Date: 20120825
  Serious: Yes (Hospitalization, Other)
  Sender: FDA-Public Use
  Company Number: PHHY2010US71957

PATIENT
  Age: 21 Year
  Sex: Female

DRUGS (1)
  1. TASIGNA [Suspect]
     Indication: CHRONIC MYELOID LEUKAEMIA
     Dosage: 300 MG, BID, ORAL
     Route: 048
     Dates: start: 20101021, end: 20101022

REACTIONS (8)
  - NAUSEA [None]
  - PERIORBITAL OEDEMA [None]
  - HYPERSENSITIVITY [None]
  - DIPLOPIA [None]
  - EYE PAIN [None]
  - VISUAL IMPAIRMENT [None]
  - HEADACHE [None]
  - CONJUNCTIVAL DISCOLOURATION [None]
